FAERS Safety Report 7257684-2 (Version None)
Quarter: 2011Q1

REPORT INFORMATION
  Report Type: 
  Country: None (occurrence: None)
  Receive Date: 20110129
  Receipt Date: 20100510
  Transmission Date: 20110831
  Serious: No
  Sender: FDA-Public Use
  Company Number: US-ABBOTT-10P-163-0644170-00

PATIENT
  Sex: Female
  Weight: 68.1 kg

DRUGS (5)
  1. HUMIRA [Suspect]
     Indication: CROHN'S DISEASE
     Route: 058
     Dates: start: 20100412, end: 20100509
  2. ZITHROMAX [Suspect]
     Indication: SPUTUM DISCOLOURED
  3. HUMIRA [Suspect]
     Indication: COLITIS ULCERATIVE
     Dates: start: 20100510
  4. ZERTEC [Concomitant]
     Indication: SEASONAL ALLERGY
  5. ZITHROMAX [Suspect]
     Indication: OROPHARYNGEAL PAIN
     Dosage: AS DIRECTED, UNTIL FINISHED
     Dates: start: 20100506

REACTIONS (6)
  - DIZZINESS [None]
  - SINUSITIS [None]
  - LYMPHADENOPATHY [None]
  - SOMNOLENCE [None]
  - OROPHARYNGEAL PAIN [None]
  - SPUTUM DISCOLOURED [None]
